FAERS Safety Report 5140096-5 (Version None)
Quarter: 2006Q4

REPORT INFORMATION
  Report Type: 
  Country: None (occurrence: None)
  Receive Date: 20061031
  Receipt Date: 20061017
  Transmission Date: 20070319
  Serious: Yes (Other)
  Sender: FDA-Public Use
  Company Number: US-ELI_LILLY_AND_COMPANY-US200610003157

PATIENT
  Age: 53 Year
  Sex: Female

DRUGS (9)
  1. ZYPREXA [Suspect]
     Indication: BIPOLAR I DISORDER
     Dosage: 5 MG, DAILY (1/D)
     Dates: start: 20030101
  2. CYMBALTA [Suspect]
     Indication: DEPRESSION
     Dosage: 60 MG, DAILY (1/D)
     Dates: start: 20060919
  3. CYMBALTA [Suspect]
     Dosage: 60 MG, UNK
  4. LITHIUM CARBONATE [Concomitant]
     Indication: BIPOLAR I DISORDER
     Dosage: UNK, UNK
     Dates: end: 20030101
  5. LYRICA [Concomitant]
     Indication: DIABETES MELLITUS
  6. COREG [Concomitant]
  7. METFORMIN HCL [Concomitant]
     Indication: DIABETES MELLITUS
  8. NICOTINE [Concomitant]
  9. AMBIEN [Concomitant]
     Dates: start: 20060923

REACTIONS (7)
  - DECUBITUS ULCER [None]
  - DYSKINESIA [None]
  - EUPHORIC MOOD [None]
  - MUSCLE FATIGUE [None]
  - NAUSEA [None]
  - PARAESTHESIA [None]
  - VISION BLURRED [None]
